FAERS Safety Report 5782430-9 (Version None)
Quarter: 2008Q2

REPORT INFORMATION
  Report Type: 
  Country: None (occurrence: None)
  Receive Date: 20080623
  Receipt Date: 20080208
  Transmission Date: 20081010
  Serious: No
  Sender: FDA-Public Use
  Company Number: US-AMGEN-KDL257432

PATIENT
  Sex: Female
  Weight: 59.9 kg

DRUGS (5)
  1. ARANESP [Suspect]
     Indication: ANAEMIA OF MALIGNANT DISEASE
     Route: 058
     Dates: start: 20070905
  2. CYTOXAN [Concomitant]
  3. IRON [Concomitant]
  4. TYLENOL [Concomitant]
  5. METHOTREXATE [Concomitant]

REACTIONS (2)
  - EPISTAXIS [None]
  - GINGIVAL BLEEDING [None]
